FAERS Safety Report 22267395 (Version 2)
Quarter: 2023Q2

REPORT INFORMATION
  Report Type: Other
  Country: PT (occurrence: PT)
  Receive Date: 20230428
  Receipt Date: 20230512
  Transmission Date: 20230721
  Serious: No
  Sender: FDA-Public Use
  Company Number: PT-ROCHE-3339750

PATIENT
  Age: 47 Year
  Sex: Female

DRUGS (9)
  1. TRASTUZUMAB [Suspect]
     Active Substance: TRASTUZUMAB
     Indication: Breast cancer
     Route: 042
  2. DOXORUBICIN [Concomitant]
     Active Substance: DOXORUBICIN
     Dosage: FOR 4 WEEKS
  3. CYCLOPHOSPHAMIDE [Concomitant]
     Active Substance: CYCLOPHOSPHAMIDE
     Dosage: FOR 4 WEEKS
  4. PACLITAXEL [Concomitant]
     Active Substance: PACLITAXEL
     Dosage: WEEKLY FOR NEXT 12 WEEKS
  5. PERTUZUMAB [Concomitant]
     Active Substance: PERTUZUMAB
  6. GOSERELIN [Concomitant]
     Active Substance: GOSERELIN
     Route: 058
  7. TAMOXIFEN [Concomitant]
     Active Substance: TAMOXIFEN
     Route: 048
  8. ZOLEDRONIC ACID [Concomitant]
     Active Substance: ZOLEDRONIC ACID
     Route: 042
  9. PREDNISOLONE [Concomitant]
     Active Substance: PREDNISOLONE

REACTIONS (2)
  - Autoimmune hypothyroidism [Recovering/Resolving]
  - Autoimmune thyroiditis [Recovering/Resolving]
